FAERS Safety Report 21950987 (Version 2)
Quarter: 2023Q1

REPORT INFORMATION
  Report Type: Other
  Country: US (occurrence: None)
  Receive Date: 20230203
  Receipt Date: 20230215
  Transmission Date: 20230418
  Serious: Yes (Hospitalization)
  Sender: FDA-Public Use
  Company Number: US-ROCHE-3277410

PATIENT
  Age: 70 Year
  Sex: Male

DRUGS (1)
  1. XELODA [Suspect]
     Active Substance: CAPECITABINE
     Indication: Rectal cancer
     Dosage: TAKE 2 TABLETS BY MOUTH TWICE A DAY 2 WEEKS ON, 1 WEEK(S) OFF (TO COMPLETE CURRENT CYCLE)
     Route: 048

REACTIONS (2)
  - Bacterial infection [Unknown]
  - Cough [Unknown]
